FAERS Safety Report 9734776 (Version 2)
Quarter: 2013Q4

REPORT INFORMATION
  Report Type: Report from Study
  Country: CA (occurrence: CA)
  Receive Date: 20131206
  Receipt Date: 20131206
  Transmission Date: 20140711
  Serious: Yes (Other)
  Sender: FDA-Public Use
  Company Number: CA-JNJFOC-20131117169

PATIENT
  Age: 47 Year
  Sex: Female
  Weight: 109.1 kg

DRUGS (3)
  1. REMICADE [Suspect]
     Indication: CROHN^S DISEASE
     Route: 042
  2. REMICADE [Suspect]
     Indication: CROHN^S DISEASE
     Route: 042
     Dates: start: 20111205
  3. HYDROCORTISONE [Concomitant]
     Indication: PREMEDICATION
     Route: 042

REACTIONS (7)
  - Kidney infection [Unknown]
  - Cystitis [Unknown]
  - Nephrolithiasis [Unknown]
  - Dehydration [Unknown]
  - Urinary tract infection [Unknown]
  - Diarrhoea [Unknown]
  - Colitis [Unknown]
